FAERS Safety Report 10619452 (Version 2)
Quarter: 2014Q4

REPORT INFORMATION
  Report Type: Spontaneous
  Country: US (occurrence: None)
  Receive Date: 20141126
  Receipt Date: 20141215
  Transmission Date: 20150529
  Serious: Yes (Other)
  Sender: FDA-Public Use
  Company Number: 2014-US-015338

PATIENT
  Age: 56 Year
  Sex: Female

DRUGS (1)
  1. XYREM [Suspect]
     Active Substance: SODIUM OXYBATE
     Indication: SLEEP DISORDER
     Route: 048
     Dates: start: 201408

REACTIONS (3)
  - Treatment noncompliance [None]
  - Therapeutic nerve ablation [None]
  - Off label use [None]

NARRATIVE: CASE EVENT DATE: 20141029
